FAERS Safety Report 9398756 (Version 1)
Quarter: 2013Q3

REPORT INFORMATION
  Report Type: Spontaneous
  Country: FR (occurrence: FR)
  Receive Date: 20130712
  Receipt Date: 20130712
  Transmission Date: 20140515
  Serious: Yes (Hospitalization)
  Sender: FDA-Public Use
  Company Number: FR-TEVA-417210ISR

PATIENT
  Sex: Male

DRUGS (1)
  1. FUROSEMIDE TEVA 40 MG [Suspect]
     Route: 048
     Dates: end: 20130609

REACTIONS (3)
  - Somnolence [Unknown]
  - Hypotension [Unknown]
  - Weight increased [Unknown]
